FAERS Safety Report 18843391 (Version 1)
Quarter: 2021Q1

REPORT INFORMATION
  Report Type: Report from Study
  Country: US (occurrence: US)
  Receive Date: 20210203
  Receipt Date: 20210203
  Transmission Date: 20210419
  Serious: Yes (Death)
  Sender: FDA-Public Use
  Company Number: US-EXELIXIS-CABO-20028939

PATIENT
  Age: 66 Year
  Sex: Male

DRUGS (2)
  1. CABOMETYX [Suspect]
     Active Substance: CABOZANTINIB S-MALATE
     Indication: SYNOVIAL SARCOMA METASTATIC
     Dosage: 60 MG, QD (4 PM WITHOUT FOOD)
     Dates: start: 20200228, end: 20200417
  2. CABOMETYX [Suspect]
     Active Substance: CABOZANTINIB S-MALATE
     Indication: METASTASES TO LUNG

REACTIONS (7)
  - Pulmonary oedema [Unknown]
  - Heart rate increased [Unknown]
  - Stomatitis [Unknown]
  - Off label use [Unknown]
  - Depressed level of consciousness [Unknown]
  - Malignant neoplasm progression [Fatal]
  - Decreased appetite [Unknown]

NARRATIVE: CASE EVENT DATE: 20200426
